FAERS Safety Report 18506906 (Version 2)
Quarter: 2021Q1

REPORT INFORMATION
  Report Type: Spontaneous
  Country: US (occurrence: US)
  Receive Date: 20201116
  Receipt Date: 20210107
  Transmission Date: 20210419
  Serious: Yes (Death)
  Sender: FDA-Public Use
  Company Number: US-PFIZER INC-2020446817

PATIENT
  Age: 69 Year
  Sex: Female
  Weight: 92.53 kg

DRUGS (2)
  1. INLYTA [Suspect]
     Active Substance: AXITINIB
     Dosage: 1 MG
  2. INLYTA [Suspect]
     Active Substance: AXITINIB
     Indication: RENAL CANCER STAGE IV
     Dosage: 5 MG, 2X/DAY (1?5MG TABLET TAKEN TWICE DAILY)
     Dates: start: 20200910, end: 20201024

REACTIONS (2)
  - Labile hypertension [Recovered/Resolved]
  - Death [Fatal]
